FAERS Safety Report 5600591-9 (Version None)
Quarter: 2008Q1

REPORT INFORMATION
  Report Type: 
  Country: None (occurrence: None)
  Receive Date: 20080123
  Receipt Date: 20080115
  Transmission Date: 20080703
  Serious: Yes (Death)
  Sender: FDA-Public Use
  Company Number: BE-SANOFI-SYNTHELABO-F01200701780

PATIENT
  Sex: Male
  Weight: 69 kg

DRUGS (13)
  1. LYSOMUCIL [Concomitant]
     Dosage: 600 MG
     Route: 048
     Dates: start: 20071211, end: 20071211
  2. DUOVENT [Concomitant]
     Route: 055
     Dates: start: 20071211, end: 20071215
  3. SIMVASTATIN [Concomitant]
     Dosage: 20 MG
     Route: 048
     Dates: end: 20071215
  4. ZESTRIL [Concomitant]
     Dosage: 25 MG
     Route: 048
     Dates: end: 20071215
  5. EMCONCOR [Concomitant]
     Indication: HYPERTENSION
     Dosage: 2.5 MG
     Route: 048
     Dates: end: 20071215
  6. CLEXANE [Concomitant]
     Indication: THROMBOSIS PROPHYLAXIS
     Dosage: 40 MG
     Route: 058
     Dates: start: 20071211, end: 20071215
  7. ZANTAC [Concomitant]
     Indication: PROPHYLAXIS AGAINST GASTROINTESTINAL ULCER
     Dosage: 300 MG
     Route: 048
     Dates: start: 20071211, end: 20071215
  8. CATAPRES [Concomitant]
     Indication: PAIN
     Dosage: 75 MG
     Route: 042
     Dates: start: 20071213, end: 20071213
  9. LEUCOVORIN [Suspect]
     Dosage: 370 MG
     Route: 041
     Dates: start: 20071116, end: 20071116
  10. ERBITUX [Suspect]
     Dosage: 462 MG
     Route: 041
     Dates: start: 20071116, end: 20071116
  11. ELOXATIN [Suspect]
     Indication: COLORECTAL CANCER
     Route: 041
     Dates: start: 20071116, end: 20071116
  12. ELOXATIN [Suspect]
     Indication: METASTASES TO LIVER
     Route: 041
     Dates: start: 20071116, end: 20071116
  13. FLUOROURACIL [Suspect]
     Dosage: 740 MG BOLUS FOLLOWED BY 4440 MG INFUSION
     Route: 041
     Dates: start: 20071116, end: 20071116

REACTIONS (1)
  - SUDDEN DEATH [None]
